FAERS Safety Report 8454753 (Version 5)
Quarter: 2019Q1

REPORT INFORMATION
  Report Type: Spontaneous
  Country: US (occurrence: US)
  Receive Date: 20120312
  Receipt Date: 20190215
  Transmission Date: 20190418
  Serious: Yes (Hospitalization, Other)
  Sender: FDA-Public Use
  Company Number: US-ASTRAZENECA-2012SE14744

PATIENT
  Age: 765 Month
  Sex: Female
  Weight: 78 kg

DRUGS (15)
  1. HYOSCYAMINE. [Concomitant]
     Active Substance: HYOSCYAMINE
     Indication: ABDOMINAL DISCOMFORT
     Route: 060
  2. NEXIUM [Suspect]
     Active Substance: ESOMEPRAZOLE MAGNESIUM
     Indication: GASTROOESOPHAGEAL REFLUX DISEASE
     Route: 048
     Dates: start: 2001
  3. VERAPAMIL [Concomitant]
     Active Substance: VERAPAMIL HYDROCHLORIDE
     Indication: HYPERTENSION
     Route: 048
  4. ZANTAC [Concomitant]
     Active Substance: RANITIDINE HYDROCHLORIDE
     Indication: ABDOMINAL DISCOMFORT
     Route: 048
  5. NEXIUM [Suspect]
     Active Substance: ESOMEPRAZOLE MAGNESIUM
     Indication: GASTROINTESTINAL TRACT IRRITATION
     Route: 048
     Dates: start: 2001
  6. EPINEPHRINE. [Concomitant]
     Active Substance: EPINEPHRINE
     Indication: HEPATOBILIARY DISEASE
     Dosage: PRN
  7. PULMICORT FLEXHALER [Suspect]
     Active Substance: BUDESONIDE
     Dosage: 180 MCG, 2 PUFFS TWO TIMES DAILY
     Route: 055
  8. SINGULAIR [Concomitant]
     Active Substance: MONTELUKAST SODIUM
     Indication: ASTHMA
     Route: 048
  9. WELLBUTRIN [Concomitant]
     Active Substance: BUPROPION HYDROCHLORIDE
     Indication: FIBROMYALGIA
     Route: 048
  10. NEXIUM [Suspect]
     Active Substance: ESOMEPRAZOLE MAGNESIUM
     Indication: HELICOBACTER INFECTION
     Route: 048
     Dates: start: 2001
  11. SPIRONOLACTONE. [Concomitant]
     Active Substance: SPIRONOLACTONE
     Indication: HYPERTENSION
     Route: 048
  12. LIPITOR [Concomitant]
     Active Substance: ATORVASTATIN CALCIUM
     Indication: HYPERLIPIDAEMIA
     Route: 048
  13. LORAZEPAM. [Concomitant]
     Active Substance: LORAZEPAM
     Indication: RESTLESS LEGS SYNDROME
     Dosage: 0.5MG AS REQUIRED
     Route: 048
  14. LORAZEPAM. [Concomitant]
     Active Substance: LORAZEPAM
     Indication: SLEEP DISORDER
     Dosage: 0.5MG AS REQUIRED
     Route: 048
  15. HYOSCYAMINE. [Concomitant]
     Active Substance: HYOSCYAMINE
     Indication: ABDOMINAL DISCOMFORT
     Route: 060

REACTIONS (16)
  - Vomiting [Unknown]
  - Food poisoning [Unknown]
  - Fall [Unknown]
  - Hepatobiliary disease [Unknown]
  - Asthma [Unknown]
  - Weight increased [Unknown]
  - Hip fracture [Unknown]
  - Corneal abrasion [Unknown]
  - Neuroma [Unknown]
  - Lower limb fracture [Unknown]
  - Migraine [Recovered/Resolved]
  - Product taste abnormal [Unknown]
  - Gastrointestinal disorder [Unknown]
  - Malaise [Unknown]
  - Blood creatinine increased [Unknown]
  - Product dose omission [Unknown]

NARRATIVE: CASE EVENT DATE: 201502
